FAERS Safety Report 11561896 (Version 1)
Quarter: 2015Q3

REPORT INFORMATION
  Report Type: Spontaneous
  Country: US (occurrence: US)
  Receive Date: 20150916
  Receipt Date: 20150916
  Transmission Date: 20151125
  Serious: No
  Sender: FDA-Public Use
  Company Number: US-ELI_LILLY_AND_COMPANY-US200811003210

PATIENT
  Age: 77 Year
  Sex: Female
  Weight: 52.15 kg

DRUGS (11)
  1. MIRALAX [Concomitant]
     Active Substance: POLYETHYLENE GLYCOL 3350
  2. CALCIUM D [Concomitant]
     Active Substance: CALCIUM\VITAMIN D
  3. PREMARIN [Concomitant]
     Active Substance: ESTROGENS, CONJUGATED
  4. MULTIVITAMIN [Concomitant]
     Active Substance: VITAMINS
  5. ULTRAM [Concomitant]
     Active Substance: TRAMADOL HYDROCHLORIDE
     Indication: PAIN
  6. NITROGLYCERIN. [Concomitant]
     Active Substance: NITROGLYCERIN
  7. LOPRESSOR [Concomitant]
     Active Substance: METOPROLOL TARTRATE
  8. MOBIC [Concomitant]
     Active Substance: MELOXICAM
     Indication: INFLAMMATION
  9. PRILOSEC [Concomitant]
     Active Substance: OMEPRAZOLE MAGNESIUM
  10. FORTEO [Suspect]
     Active Substance: TERIPARATIDE
     Indication: OSTEOPOROSIS
     Dosage: 20 UG, DAILY (1/D)
     Dates: start: 20080922
  11. XANAX [Concomitant]
     Active Substance: ALPRAZOLAM

REACTIONS (8)
  - Pain in extremity [Not Recovered/Not Resolved]
  - Decreased appetite [Not Recovered/Not Resolved]
  - Constipation [Not Recovered/Not Resolved]
  - Asthenia [Not Recovered/Not Resolved]
  - Bone pain [Not Recovered/Not Resolved]
  - Hot flush [Not Recovered/Not Resolved]
  - Myalgia [Not Recovered/Not Resolved]
  - Musculoskeletal chest pain [Not Recovered/Not Resolved]

NARRATIVE: CASE EVENT DATE: 200810
